FAERS Safety Report 5221418-3 (Version None)
Quarter: 2007Q1

REPORT INFORMATION
  Report Type: 
  Country: None (occurrence: None)
  Receive Date: 20070126
  Receipt Date: 20070112
  Transmission Date: 20070707
  Serious: Yes (Hospitalization, Other)
  Sender: FDA-Public Use
  Company Number: US-SHR-US-2006-036781

PATIENT
  Age: 38 Year
  Sex: Male
  Weight: 90.703 kg

DRUGS (6)
  1. BETASERON [Suspect]
     Indication: RELAPSING-REMITTING MULTIPLE SCLEROSIS
     Dosage: 8 MIU, EVERY 2D
     Route: 058
     Dates: start: 20021120, end: 20060918
  2. BETASERON [Suspect]
     Route: 058
  3. CORTICOSTEROIDS [Concomitant]
     Dates: start: 20061201, end: 20061205
  4. FLOMAX [Concomitant]
     Dosage: 4 MG, 1X/DAY
     Route: 048
     Dates: start: 20061117
  5. DULOXETIN (CYMBALTA) [Concomitant]
     Indication: DEPRESSION
     Dosage: 30 MG, 1X/DAY
     Route: 048
     Dates: start: 20061016
  6. BACLOFEN [Concomitant]
     Dosage: 10 MG, 2X/DAY
     Route: 048
     Dates: start: 20061016

REACTIONS (6)
  - BACTERIAL INFECTION [None]
  - BLOOD GLUCOSE INCREASED [None]
  - CYSTITIS [None]
  - HYPERTENSION [None]
  - MULTIPLE SCLEROSIS [None]
  - WHITE BLOOD CELL COUNT INCREASED [None]
